FAERS Safety Report 16144398 (Version 1)
Quarter: 2019Q2

REPORT INFORMATION
  Report Type: Report from Study
  Country: None (occurrence: BR)
  Receive Date: 20190401
  Receipt Date: 20190401
  Transmission Date: 20190711
  Serious: Yes (Other)
  Sender: FDA-Public Use
  Company Number: BR-ABBVIE-19K-020-2722017-00

PATIENT
  Sex: Male
  Weight: 85 kg

DRUGS (4)
  1. HUMIRA [Interacting]
     Active Substance: ADALIMUMAB
     Dosage: WEEK 2
     Route: 058
     Dates: start: 2018, end: 2018
  2. HUMIRA [Interacting]
     Active Substance: ADALIMUMAB
     Route: 058
     Dates: end: 20190212
  3. AZATHIOPRINE. [Concomitant]
     Active Substance: AZATHIOPRINE
     Indication: CROHN^S DISEASE
     Route: 048
     Dates: start: 201712
  4. HUMIRA [Suspect]
     Active Substance: ADALIMUMAB
     Indication: CROHN^S DISEASE
     Dosage: WEEK 0
     Route: 058
     Dates: start: 20180925, end: 20180925

REACTIONS (1)
  - Drug interaction [Unknown]
